FAERS Safety Report 5732028-3 (Version None)
Quarter: 2008Q2

REPORT INFORMATION
  Report Type: 
  Country: None (occurrence: None)
  Receive Date: 20080429
  Receipt Date: 20080404
  Transmission Date: 20081010
  Serious: Yes (Other)
  Sender: FDA-Public Use
  Company Number: GB-DEXPHARM-20080313

PATIENT
  Age: 74 Year
  Sex: Male

DRUGS (3)
  1. DICLOFENAC SODIUM [Suspect]
     Indication: RHEUMATOID ARTHRITIS
     Dosage: ^AS REQUIRED^ [75 MG MILGRAM(S) ]; ^2-3 TIMES A WEEK^ {ORAL 75 MG MILIGRAM(S)}
     Route: 048
  2. DICLOFENAC SODIUM [Suspect]
     Indication: RHEUMATOID ARTHRITIS
     Dosage: ^AS REQUIRED^ [75 MG MILGRAM(S) ]; ^2-3 TIMES A WEEK^ {ORAL 75 MG MILIGRAM(S)}
     Route: 048
  3. CLOPIDOGREL [Concomitant]

REACTIONS (7)
  - ARTHRITIS [None]
  - BALANCE DISORDER [None]
  - DIARRHOEA [None]
  - DIPLOPIA [None]
  - DYSARTHRIA [None]
  - PROSTATIC DISORDER [None]
  - TRANSIENT ISCHAEMIC ATTACK [None]
